FAERS Safety Report 13678781 (Version 2)
Quarter: 2017Q2

REPORT INFORMATION
  Report Type: Spontaneous
  Country: FR (occurrence: FR)
  Receive Date: 20170622
  Receipt Date: 20170623
  Transmission Date: 20170830
  Serious: Yes (Hospitalization)
  Sender: FDA-Public Use
  Company Number: FR-JNJFOC-20170612366

PATIENT
  Age: 28 Year
  Sex: Female

DRUGS (5)
  1. LOXEN [Concomitant]
     Active Substance: NICARDIPINE HYDROCHLORIDE
     Route: 065
  2. SERESTA [Suspect]
     Active Substance: OXAZEPAM
     Indication: ABNORMAL BEHAVIOUR
     Route: 065
  3. HALDOL [Suspect]
     Active Substance: HALOPERIDOL
     Indication: PERSECUTORY DELUSION
     Route: 065
  4. LEVOTHYROX [Concomitant]
     Active Substance: LEVOTHYROXINE
     Route: 065
  5. BETAMETHASONE. [Concomitant]
     Active Substance: BETAMETHASONE
     Route: 065

REACTIONS (5)
  - Delirium [Unknown]
  - Exposure during pregnancy [Unknown]
  - Gestational hypertension [Unknown]
  - Abnormal behaviour [Unknown]
  - Premature labour [Unknown]

NARRATIVE: CASE EVENT DATE: 20140823
